FAERS Safety Report 12830211 (Version 1)
Quarter: 2016Q4

REPORT INFORMATION
  Report Type: Spontaneous
  Country: US (occurrence: US)
  Receive Date: 20161007
  Receipt Date: 20161007
  Transmission Date: 20170207
  Serious: No
  Sender: FDA-Public Use
  Company Number: US-SA-2016SA157922

PATIENT
  Age: 43 Year
  Sex: Female

DRUGS (5)
  1. ZOLOFT [Concomitant]
     Active Substance: SERTRALINE HYDROCHLORIDE
  2. VITAMIN D3 [Concomitant]
     Active Substance: CHOLECALCIFEROL
  3. AUBAGIO [Suspect]
     Active Substance: TERIFLUNOMIDE
     Indication: MULTIPLE SCLEROSIS
     Route: 048
  4. B12 ACTIVE [Concomitant]
  5. XANAX [Concomitant]
     Active Substance: ALPRAZOLAM

REACTIONS (3)
  - Hepatic enzyme increased [Unknown]
  - Headache [Unknown]
  - Visual impairment [Unknown]
